FAERS Safety Report 23514859 (Version 1)
Quarter: 2024Q1

REPORT INFORMATION
  Report Type: Spontaneous
  Country: US (occurrence: US)
  Receive Date: 20240212
  Receipt Date: 20240212
  Transmission Date: 20240409
  Serious: Yes (Other)
  Sender: FDA-Public Use
  Company Number: US-RADIUS HEALTH, INC.-2020US004074

PATIENT
  Age: 65 Year
  Sex: Female

DRUGS (2)
  1. TYMLOS [Suspect]
     Active Substance: ABALOPARATIDE
     Indication: Product used for unknown indication
     Dosage: 80 MCG, DAILY
     Route: 058
     Dates: start: 201808
  2. MENADIONE [Concomitant]
     Active Substance: MENADIONE
     Indication: Product used for unknown indication
     Dosage: UNK
     Dates: end: 20201025

REACTIONS (2)
  - Thrombosis [Unknown]
  - Pulmonary thrombosis [Unknown]

NARRATIVE: CASE EVENT DATE: 20201021
